FAERS Safety Report 10434473 (Version 2)
Quarter: 2014Q3

REPORT INFORMATION
  Report Type: Report from Study
  Country: DE (occurrence: DE)
  Receive Date: 20140905
  Receipt Date: 20140918
  Transmission Date: 20150326
  Serious: Yes (Death)
  Sender: FDA-Public Use
  Company Number: DE-IPSEN BIOPHARMACEUTICALS, INC.-2014-4743

PATIENT
  Age: 41 Year
  Sex: Female
  Weight: 59 kg

DRUGS (5)
  1. TAFIL [Concomitant]
     Active Substance: ALPRAZOLAM
     Route: 065
     Dates: start: 2011, end: 2012
  2. DYSPORT [Suspect]
     Active Substance: ABOBOTULINUMTOXINA
     Indication: TORTICOLLIS
     Dosage: 650 UNITS
     Route: 030
     Dates: start: 20140605, end: 20140605
  3. TAFIL [Concomitant]
     Active Substance: ALPRAZOLAM
     Route: 065
     Dates: start: 2013, end: 2013
  4. DOCITON [Concomitant]
     Indication: PRODUCT USED FOR UNKNOWN INDICATION
     Route: 065
  5. TAFIL [Concomitant]
     Active Substance: ALPRAZOLAM
     Indication: PRODUCT USED FOR UNKNOWN INDICATION
     Route: 065
     Dates: start: 2014

REACTIONS (3)
  - Muscular weakness [Unknown]
  - Asphyxia [Fatal]
  - Overdose [Unknown]

NARRATIVE: CASE EVENT DATE: 201203
